FAERS Safety Report 6961284-9 (Version None)
Quarter: 2010Q3

REPORT INFORMATION
  Report Type: 
  Country: None (occurrence: None)
  Receive Date: 20100901
  Receipt Date: 20100901
  Transmission Date: 20110219
  Serious: Yes (Hospitalization)
  Sender: FDA-Public Use
  Company Number: A0877881A

PATIENT
  Age: 49 Year
  Sex: Male

DRUGS (5)
  1. TRIZIVIR [Suspect]
     Indication: HIV INFECTION
     Dosage: 1TAB TWICE PER DAY
     Route: 048
     Dates: start: 20030101, end: 20090501
  2. EPZICOM [Suspect]
     Indication: HIV INFECTION
     Dosage: 1TAB PER DAY
     Route: 048
     Dates: start: 20090501
  3. VIRAMUNE [Concomitant]
  4. QUINAPRIL [Concomitant]
  5. CARVEDILOL [Concomitant]

REACTIONS (4)
  - DIZZINESS [None]
  - PAIN [None]
  - SKIN DISCOLOURATION [None]
  - VITILIGO [None]
